FAERS Safety Report 4794527-0 (Version None)
Quarter: 2005Q4

REPORT INFORMATION
  Report Type: 
  Country: None (occurrence: None)
  Receive Date: 20051011
  Receipt Date: 20050720
  Transmission Date: 20060501
  Serious: Yes (Other)
  Sender: FDA-Public Use
  Company Number: PHEH2005US08043

PATIENT
  Age: 71 Year
  Sex: Female

DRUGS (3)
  1. ZOMETA [Suspect]
     Indication: METASTASES TO BONE
     Dosage: EVERY 4 WEEKS
     Dates: start: 20021001, end: 20050601
  2. HERCEPTIN [Concomitant]
  3. ABRAXANE [Concomitant]

REACTIONS (15)
  - BONE DISORDER [None]
  - DENTAL NECROSIS [None]
  - ENDODONTIC PROCEDURE [None]
  - ERYTHEMA [None]
  - GINGIVAL INFECTION [None]
  - IMPAIRED HEALING [None]
  - OEDEMA MUCOSAL [None]
  - ORAL SOFT TISSUE DISORDER [None]
  - OSTEOMYELITIS [None]
  - PAIN IN JAW [None]
  - PERIODONTITIS [None]
  - SOFT TISSUE INFECTION [None]
  - TOOTH DISORDER [None]
  - TOOTH FRACTURE [None]
  - TOOTH LOSS [None]
